FAERS Safety Report 13093935 (Version 1)
Quarter: 2017Q1

REPORT INFORMATION
  Report Type: Spontaneous
  Country: US (occurrence: US)
  Receive Date: 20170106
  Receipt Date: 20170106
  Transmission Date: 20170428
  Serious: Yes (Hospitalization)
  Sender: FDA-Public Use
  Company Number: US-FRESENIUS KABI-FK201700200

PATIENT
  Age: 45 Year
  Sex: Female

DRUGS (3)
  1. BETAMETHASONE. [Suspect]
     Active Substance: BETAMETHASONE
     Indication: RADICULAR PAIN
     Route: 008
  2. LIDOCAINE (MANUFACTURER UNKNOWN) [Suspect]
     Active Substance: LIDOCAINE
     Indication: RADICULAR PAIN
     Route: 008
  3. METHYLPREDNISOLONE (MANUFACTURER UNKNOWN) [Suspect]
     Active Substance: METHYLPREDNISOLONE
     Indication: RADICULAR PAIN
     Route: 008

REACTIONS (4)
  - Pneumocephalus [Recovered/Resolved]
  - Meningitis aseptic [Recovered/Resolved]
  - Product use issue [Recovered/Resolved]
  - Procedural complication [Recovered/Resolved]
